FAERS Safety Report 4366739-1 (Version None)
Quarter: 2004Q2

REPORT INFORMATION
  Report Type: 
  Country: None (occurrence: None)
  Receive Date: 20040527
  Receipt Date: 20040519
  Transmission Date: 20050107
  Serious: Yes (Death)
  Sender: FDA-Public Use
  Company Number: 04-05-0733

PATIENT
  Age: 78 Year
  Sex: Female

DRUGS (2)
  1. CLOZAPINE [Suspect]
     Indication: DELIRIUM
     Dosage: 50-75MG QD ORAL
     Route: 048
     Dates: start: 20001201, end: 20040401
  2. CLOZAPINE [Suspect]
     Indication: HALLUCINATION
     Dosage: 50-75MG QD ORAL
     Route: 048
     Dates: start: 20001201, end: 20040401

REACTIONS (1)
  - METASTATIC MALIGNANT MELANOMA [None]
